FAERS Safety Report 10081164 (Version 2)
Quarter: 2014Q2

REPORT INFORMATION
  Report Type: Spontaneous
  Country: US (occurrence: US)
  Receive Date: 20140416
  Receipt Date: 20140416
  Transmission Date: 20141212
  Serious: Yes (Other)
  Sender: FDA-Public Use
  Company Number: US-SA-2014SA027348

PATIENT
  Sex: 0

DRUGS (1)
  1. AMBIEN [Suspect]
     Route: 065

REACTIONS (3)
  - Road traffic accident [Unknown]
  - Concussion [Unknown]
  - Somnambulism [Unknown]
